FAERS Safety Report 18322391 (Version 4)
Quarter: 2020Q4

REPORT INFORMATION
  Report Type: Report from Study
  Country: None (occurrence: ES)
  Receive Date: 20200929
  Receipt Date: 20201013
  Transmission Date: 20210113
  Serious: Yes (Hospitalization, Other)
  Sender: FDA-Public Use
  Company Number: ES-ABBVIE-20K-144-3583725-00

PATIENT
  Age: 78 Year
  Sex: Male
  Weight: 77 kg

DRUGS (2)
  1. DUODOPA [Suspect]
     Active Substance: CARBIDOPA\LEVODOPA
  2. DUODOPA [Suspect]
     Active Substance: CARBIDOPA\LEVODOPA
     Indication: PARKINSON^S DISEASE
     Dosage: 16 HOURS
     Route: 050
     Dates: start: 20191011

REACTIONS (6)
  - SARS-CoV-2 test positive [Recovered/Resolved]
  - Nervousness [Unknown]
  - Weight decreased [Recovering/Resolving]
  - Pneumonia [Unknown]
  - Hypophagia [Unknown]
  - Dyskinesia [Unknown]

NARRATIVE: CASE EVENT DATE: 202009
